FAERS Safety Report 9121501 (Version 1)
Quarter: 2013Q1

REPORT INFORMATION
  Report Type: Spontaneous
  Country: US (occurrence: US)
  Receive Date: 20130104
  Receipt Date: 20130104
  Transmission Date: 20140127
  Serious: Yes (Other)
  Sender: FDA-Public Use
  Company Number: US-RB-048130-13

PATIENT
  Age: 17 Year
  Sex: Female

DRUGS (2)
  1. MUCINEX DM [Suspect]
     Indication: DRUG ABUSE
     Dosage: 9 TABLETS AT ONE TIME
     Route: 048
     Dates: start: 20121230
  2. MUCINEX DM [Suspect]

REACTIONS (1)
  - Drug abuse [Unknown]
